FAERS Safety Report 9231926 (Version 3)
Quarter: 2013Q3

REPORT INFORMATION
  Report Type: Report from Study
  Country: US (occurrence: US)
  Receive Date: 20130415
  Receipt Date: 20130802
  Transmission Date: 20140515
  Serious: Yes (Hospitalization, Other)
  Sender: FDA-Public Use
  Company Number: US-ELI_LILLY_AND_COMPANY-US201304003311

PATIENT
  Age: 70 Year
  Sex: Male
  Weight: 83.9 kg

DRUGS (3)
  1. TERIPARATIDE [Suspect]
     Indication: OSTEOPOROSIS
  2. TERIPARATIDE [Suspect]
     Dosage: UNK, QD
     Dates: start: 20130201
  3. TERIPARATIDE [Suspect]
     Dosage: UNK, QD
     Dates: start: 20130201

REACTIONS (3)
  - Gastritis [Recovering/Resolving]
  - Gastric cancer stage I [Unknown]
  - Myocardial infarction [Unknown]
